FAERS Safety Report 12400712 (Version 2)
Quarter: 2016Q2

REPORT INFORMATION
  Report Type: Spontaneous
  Country: US (occurrence: US)
  Receive Date: 20160525
  Receipt Date: 20160525
  Transmission Date: 20160815
  Serious: No
  Sender: FDA-Public Use
  Company Number: US-SA-2015SA093670

PATIENT
  Age: 67 Year
  Sex: Female

DRUGS (3)
  1. GLIPIZIDE. [Concomitant]
     Active Substance: GLIPIZIDE
  2. LANTUS SOLOSTAR [Suspect]
     Active Substance: INSULIN GLARGINE
     Indication: TYPE 2 DIABETES MELLITUS
     Dosage: START DATE: 2-3 MONTHS DOSE:40 UNIT(S)
     Route: 065
     Dates: start: 2015
  3. SOLOSTAR [Concomitant]
     Active Substance: DEVICE
     Dates: start: 2015

REACTIONS (9)
  - Fatigue [Unknown]
  - Fibromyalgia [Unknown]
  - Muscle tightness [Unknown]
  - Weight increased [Unknown]
  - Arthralgia [Unknown]
  - Panic reaction [Unknown]
  - Muscle spasms [Unknown]
  - Joint stiffness [Unknown]
  - Blood glucose abnormal [Unknown]

NARRATIVE: CASE EVENT DATE: 2015
